FAERS Safety Report 7041248-X (Version None)
Quarter: 2010Q4

REPORT INFORMATION
  Report Type: 
  Country: None (occurrence: None)
  Receive Date: 20101013
  Receipt Date: 20091117
  Transmission Date: 20110411
  Serious: Yes (Life-Threatening, Other)
  Sender: FDA-Public Use
  Company Number: GB-SANOFI-AVENTIS-2009SA002926

PATIENT
  Age: 77 Year
  Sex: Female

DRUGS (9)
  1. FRUSEMIDE [Suspect]
     Route: 048
  2. FRUSEMIDE [Suspect]
     Indication: PLEURAL EFFUSION
     Route: 048
  3. VANCOMYCIN [Suspect]
     Indication: WOUND INFECTION
     Route: 042
  4. AMILORIDE HYDROCHLORIDE [Concomitant]
     Indication: PRODUCT USED FOR UNKNOWN INDICATION
  5. ATENOLOL [Concomitant]
  6. BENDROFLUMETHIAZIDE [Concomitant]
     Indication: HYPERTENSION
  7. OPIOIDS [Concomitant]
     Indication: PAIN
  8. RAMIPRIL [Concomitant]
     Indication: HYPERTENSION
  9. SPIRONOLACTONE [Concomitant]

REACTIONS (5)
  - CARDIAC ARREST [None]
  - DRUG INTERACTION [None]
  - HYPOKALAEMIA [None]
  - HYPOMAGNESAEMIA [None]
  - VENTRICULAR TACHYCARDIA [None]
